FAERS Safety Report 14739541 (Version 3)
Quarter: 2018Q3

REPORT INFORMATION
  Report Type: Spontaneous
  Country: JP (occurrence: JP)
  Receive Date: 20180410
  Receipt Date: 20180703
  Transmission Date: 20181010
  Serious: Yes (Other)
  Sender: FDA-Public Use
  Company Number: JP-UCBSA-2018015098

PATIENT
  Age: 5 Month
  Sex: Male
  Weight: 8 kg

DRUGS (7)
  1. ZINC OXIDE. [Concomitant]
     Active Substance: ZINC OXIDE
     Indication: ECZEMA ASTEATOTIC
     Dosage: UNK
     Dates: start: 20171229
  2. E KEPPRA [Suspect]
     Active Substance: LEVETIRACETAM
     Indication: EPILEPSY
     Dosage: UNK
     Route: 048
     Dates: start: 20180303, end: 20180326
  3. PHENOBAL [Suspect]
     Active Substance: PHENOBARBITAL
     Indication: EPILEPSY
     Dosage: 10 MG, 2X/DAY (BID)
     Route: 048
     Dates: start: 20171230, end: 20180310
  4. PHENOBAL [Suspect]
     Active Substance: PHENOBARBITAL
     Dosage: DOSE REDUCED
     Route: 048
     Dates: start: 20180310, end: 20180318
  5. E KEPPRA [Suspect]
     Active Substance: LEVETIRACETAM
     Dosage: REDUCED DOSE
     Route: 048
     Dates: start: 20180327, end: 20180330
  6. PHENOBAL [Suspect]
     Active Substance: PHENOBARBITAL
     Dosage: 10 MG, 2X/DAY (BID)
     Route: 048
     Dates: start: 20180319
  7. PROPETO [Concomitant]
     Indication: ECZEMA ASTEATOTIC
     Dosage: UNK
     Dates: start: 20180205

REACTIONS (3)
  - Epilepsy [Recovering/Resolving]
  - Drug ineffective [Unknown]
  - Off label use [Unknown]

NARRATIVE: CASE EVENT DATE: 201803
